FAERS Safety Report 4899672-7 (Version None)
Quarter: 2006Q1

REPORT INFORMATION
  Report Type: 
  Country: None (occurrence: None)
  Receive Date: 20060131
  Receipt Date: 20060117
  Transmission Date: 20060701
  Serious: Yes (Life-Threatening, Hospitalization)
  Sender: FDA-Public Use
  Company Number: 2006RR-01504

PATIENT
  Age: 42 Year
  Sex: Female

DRUGS (3)
  1. AMOXICILLIN [Suspect]
     Indication: TOOTH INFECTION
     Dosage: 500 MG, TID,
     Dates: start: 20010101
  2. HYDROCODONE BITARTRATE [Concomitant]
  3. IBUPROFEN [Concomitant]

REACTIONS (5)
  - HEPATIC ENCEPHALOPATHY [None]
  - HEPATIC FAILURE [None]
  - HEPATIC NECROSIS [None]
  - HEPATITIS ACUTE [None]
  - LIVER TRANSPLANT [None]
